FAERS Safety Report 12373967 (Version 1)
Quarter: 2016Q2

REPORT INFORMATION
  Report Type: Spontaneous
  Country: US (occurrence: US)
  Receive Date: 20160517
  Receipt Date: 20160517
  Transmission Date: 20160815
  Serious: No
  Sender: FDA-Public Use
  Company Number: US-TEVA-647526USA

PATIENT
  Sex: Male

DRUGS (1)
  1. CEFDINIR. [Suspect]
     Active Substance: CEFDINIR
     Indication: SINUSITIS
     Route: 065
     Dates: start: 20160322, end: 20160323

REACTIONS (2)
  - Aggression [Unknown]
  - Urinary incontinence [Unknown]
